FAERS Safety Report 4654803-9 (Version None)
Quarter: 2005Q2

REPORT INFORMATION
  Report Type: 
  Country: None (occurrence: None)
  Receive Date: 20050506
  Receipt Date: 20050428
  Transmission Date: 20051028
  Serious: Yes (Hospitalization)
  Sender: FDA-Public Use
  Company Number: IE-ROCHE-403393

PATIENT
  Sex: Male

DRUGS (2)
  1. ROACCUTANE [Suspect]
     Indication: ACNE
     Route: 048
     Dates: start: 20041030
  2. ROACCUTANE [Suspect]
     Route: 048
     Dates: start: 19990615

REACTIONS (3)
  - ALCOHOL USE [None]
  - INJURY ASPHYXIATION [None]
  - SUICIDE ATTEMPT [None]
